FAERS Safety Report 13361552 (Version 1)
Quarter: 2017Q1

REPORT INFORMATION
  Report Type: Spontaneous
  Country: US (occurrence: US)
  Receive Date: 20170323
  Receipt Date: 20170323
  Transmission Date: 20170429
  Serious: Yes (Other)
  Sender: FDA-Public Use
  Company Number: US-ASTRAZENECA-2017SE29525

PATIENT
  Sex: Male
  Weight: 77.1 kg

DRUGS (1)
  1. CASODEX [Suspect]
     Active Substance: BICALUTAMIDE
     Indication: PROSTATE CANCER
     Dosage: DAILY
     Route: 048
     Dates: start: 2007, end: 2012

REACTIONS (1)
  - Malignant neoplasm progression [Unknown]
